FAERS Safety Report 4620188-7 (Version None)
Quarter: 2005Q1

REPORT INFORMATION
  Report Type: 
  Country: None (occurrence: None)
  Receive Date: 20050324
  Receipt Date: 20050309
  Transmission Date: 20050727
  Serious: Yes (Death, Other)
  Sender: FDA-Public Use
  Company Number: US_0503114032

PATIENT
  Age: 7 Year
  Sex: Female

DRUGS (7)
  1. VINCRISTINE SULFATE [Suspect]
     Indication: BURKITT'S LYMPHOMA STAGE III
     Dosage: 1 MG/M2 OTHER
  2. CYCLOPHOSPHAMIDE [Concomitant]
  3. METHOTREXATE [Concomitant]
  4. HYDROCORTISONE [Concomitant]
  5. PREDNISONE [Concomitant]
  6. HELM (COTRIMOXAZOLE) [Concomitant]
  7. DEXTROSE AND NACL [Concomitant]

REACTIONS (9)
  - ANAEMIA [None]
  - BURKITT'S LYMPHOMA [None]
  - CARDIAC FAILURE [None]
  - CONDITION AGGRAVATED [None]
  - DRUG TOXICITY [None]
  - ESCHERICHIA BACTERAEMIA [None]
  - GENERAL NUTRITION DISORDER [None]
  - INFECTION PARASITIC [None]
  - INFESTATION [None]
